FAERS Safety Report 15691723 (Version 3)
Quarter: 2019Q1

REPORT INFORMATION
  Report Type: Report from Study
  Country: US (occurrence: US)
  Receive Date: 20181205
  Receipt Date: 20190205
  Transmission Date: 20190417
  Serious: Yes (Hospitalization)
  Sender: FDA-Public Use
  Company Number: US-TAIHO ONCOLOGY  INC-EU-2018-02269

PATIENT
  Age: 65 Year
  Sex: Female
  Weight: 105.2 kg

DRUGS (12)
  1. ONDANSETRON [Concomitant]
     Active Substance: ONDANSETRON
     Dates: start: 20181017
  2. TRIAMTERENE AND HYDROCHLOROTHIAZIDE [Concomitant]
     Active Substance: HYDROCHLOROTHIAZIDE\TRIAMTERENE
     Dates: start: 20180104, end: 20181121
  3. LONSURF [Suspect]
     Active Substance: TIPIRACIL HYDROCHLORIDE\TRIFLURIDINE
     Indication: NEUROENDOCRINE TUMOUR
     Dosage: CYCLE 1 COMPLETED ON 18/NOV/2018, STUDY DRUG RESTARTED ON 05/DEC/2018?DAYS 1-5 AND 8-12.
     Route: 048
     Dates: start: 20181107
  4. GLIPIZIDE. [Concomitant]
     Active Substance: GLIPIZIDE
     Dates: start: 20180104
  5. TEMODAR [Suspect]
     Active Substance: TEMOZOLOMIDE
     Indication: NEUROENDOCRINE TUMOUR
     Dosage: CYCLE 1 COMPLETED.?DOSE: 150 MG/M2?DAYS 8-12.
     Route: 048
     Dates: start: 20181114, end: 20181118
  6. TEMODAR [Suspect]
     Active Substance: TEMOZOLOMIDE
     Dosage: STUDY DRUG RESTARTED AT REDUCED DOSE 100 MG/M2?DAYS 8-12.
     Route: 048
     Dates: start: 20181205
  7. IMODIUM [Concomitant]
     Active Substance: LOPERAMIDE HYDROCHLORIDE
     Dates: start: 20181108
  8. VERAPAMIL [Concomitant]
     Active Substance: VERAPAMIL HYDROCHLORIDE
     Dates: start: 20180104
  9. METFORMIN [Concomitant]
     Active Substance: METFORMIN HYDROCHLORIDE
     Dates: start: 20180104
  10. BENAZEPRIL [Concomitant]
     Active Substance: BENAZEPRIL HYDROCHLORIDE
     Dates: start: 20180423
  11. LOVASTATIN. [Concomitant]
     Active Substance: LOVASTATIN
     Dates: start: 20180423
  12. PROCHLORPERAZINE. [Concomitant]
     Active Substance: PROCHLORPERAZINE
     Dates: start: 20181121

REACTIONS (2)
  - Dehydration [Recovered/Resolved]
  - Hypotension [None]

NARRATIVE: CASE EVENT DATE: 20181124
